FAERS Safety Report 6216092-3 (Version None)
Quarter: 2009Q2

REPORT INFORMATION
  Report Type: 
  Country: None (occurrence: None)
  Receive Date: 20090605
  Receipt Date: 20090601
  Transmission Date: 20091009
  Serious: Yes (Other)
  Sender: FDA-Public Use
  Company Number: CA-ROXANE LABORATORIES, INC.-2009-RO-00547RO

PATIENT
  Age: 37 Year
  Sex: Female

DRUGS (6)
  1. PREDNISONE [Suspect]
     Indication: DEAFNESS
     Dosage: 60MG
  2. SERTRALINE HCL [Suspect]
  3. ACETAMINOPHEN 1 [Suspect]
  4. ACETAMINOPHEN 1 [Suspect]
  5. ACETAMINOPHEN 2 [Suspect]
  6. ACETAMINOPHEN 3 [Suspect]

REACTIONS (8)
  - BALANCE DISORDER [None]
  - DEAFNESS NEUROSENSORY [None]
  - DRUG ABUSE [None]
  - DRUG DEPENDENCE [None]
  - DRUG INEFFECTIVE [None]
  - LIVER DISORDER [None]
  - RENAL DISORDER [None]
  - TINNITUS [None]
